FAERS Safety Report 25012573 (Version 1)
Quarter: 2025Q1

REPORT INFORMATION
  Report Type: Spontaneous
  Country: US (occurrence: None)
  Receive Date: 20250225
  Receipt Date: 20250225
  Transmission Date: 20250409
  Serious: Yes (Death)
  Sender: FDA-CTU
  Company Number: None

PATIENT
  Age: 66 Year
  Sex: Female

DRUGS (1)
  1. XOLAIR [Suspect]
     Active Substance: OMALIZUMAB
     Dosage: 300 MG ML BIWEEKLY SUBCUTANEOUS?
     Route: 058

REACTIONS (3)
  - Eye swelling [None]
  - Myalgia [None]
  - Drug hypersensitivity [None]

NARRATIVE: CASE EVENT DATE: 20250202
